FAERS Safety Report 11425055 (Version 1)
Quarter: 2015Q3

REPORT INFORMATION
  Report Type: Spontaneous
  Country: US (occurrence: US)
  Receive Date: 20150821
  Receipt Date: 20150821
  Transmission Date: 20151125
  Serious: No
  Sender: FDA-Public Use
  Company Number: US-ELI_LILLY_AND_COMPANY-US201302006304

PATIENT
  Sex: Female

DRUGS (4)
  1. LENTE ILETIN II (PORK) [Suspect]
     Active Substance: INSULIN PORK\INSULIN PURIFIED PORK
     Indication: DIABETES MELLITUS
     Dosage: UNK
     Dates: start: 1983, end: 1993
  2. HUMULIN N [Suspect]
     Active Substance: INSULIN HUMAN
     Dosage: 8 U, EACH EVENING
     Dates: start: 1993, end: 2007
  3. NOVOLIN N [Concomitant]
     Active Substance: INSULIN HUMAN
  4. HUMULIN N [Suspect]
     Active Substance: INSULIN HUMAN
     Indication: DIABETES MELLITUS
     Dosage: 10 U, EACH MORNING
     Dates: start: 1993, end: 2007

REACTIONS (2)
  - Antibody test abnormal [Unknown]
  - Glycosylated haemoglobin decreased [Unknown]
